FAERS Safety Report 10101970 (Version 1)
Quarter: 2014Q2

REPORT INFORMATION
  Report Type: Report from Study
  Country: CA (occurrence: CA)
  Receive Date: 20140424
  Receipt Date: 20140424
  Transmission Date: 20141212
  Serious: Yes (Hospitalization)
  Sender: FDA-Public Use
  Company Number: CA-BRISTOL-MYERS SQUIBB COMPANY-20634879

PATIENT
  Age: 54 Year
  Sex: Female

DRUGS (7)
  1. ORENCIA [Suspect]
     Indication: RHEUMATOID ARTHRITIS
     Dosage: INT ON 06JAN2014
     Dates: start: 20130128
  2. TRACLEER [Suspect]
  3. CIALIS [Suspect]
  4. PREDNISONE [Concomitant]
  5. OXYCODONE [Concomitant]
  6. ZOPICLONE [Concomitant]
  7. OLANZAPINE [Concomitant]

REACTIONS (5)
  - Hypotension [Unknown]
  - Chest pain [Unknown]
  - Loss of consciousness [Unknown]
  - Fall [Unknown]
  - Head injury [Unknown]
